FAERS Safety Report 4415385-X (Version None)
Quarter: 2004Q2

REPORT INFORMATION
  Report Type: 
  Country: None (occurrence: None)
  Receive Date: 20040630
  Receipt Date: 20030819
  Transmission Date: 20050107
  Serious: Yes (Other)
  Sender: FDA-Public Use
  Company Number: 2003035289

PATIENT
  Sex: Female

DRUGS (2)
  1. ZOLOFT [Suspect]
     Indication: ILL-DEFINED DISORDER
     Dosage: 25 MG (DAILY), ORAL
     Route: 048
     Dates: end: 20030801
  2. TRILEPTAL [Concomitant]

REACTIONS (3)
  - BODY TEMPERATURE INCREASED [None]
  - RASH [None]
  - SYNCOPE [None]
